FAERS Safety Report 18657101 (Version 1)
Quarter: 2020Q4

REPORT INFORMATION
  Report Type: Spontaneous
  Country: US (occurrence: US)
  Receive Date: 20201224
  Receipt Date: 20201224
  Transmission Date: 20210114
  Serious: Yes (Other)
  Sender: FDA-Public Use
  Company Number: US-LUPIN PHARMACEUTICALS INC.-2020-10459

PATIENT
  Sex: Female

DRUGS (4)
  1. DESVENLAFAXINE EXTENDED RELEASE TABLET 50 MG [Suspect]
     Active Substance: DESVENLAFAXINE SUCCINATE
     Indication: ANXIETY
     Dosage: 50 MILLIGRAM ALOG WITH 25 MG
     Route: 048
     Dates: start: 2018, end: 2019
  2. DESVENLAFAXINE. [Suspect]
     Active Substance: DESVENLAFAXINE
     Indication: ANXIETY
     Dosage: 25 MG BY MOUTH ALONGWITH 50MG DOSE
     Route: 048
     Dates: start: 2018, end: 2019
  3. VIIBRYD [Concomitant]
     Active Substance: VILAZODONE HYDROCHLORIDE
     Indication: ANXIETY
     Dosage: 20 MILLIGRAM
  4. LEVEMIR [Concomitant]
     Active Substance: INSULIN DETEMIR
     Indication: DIABETES MELLITUS
     Dosage: 10 UNIT, AT NIGHT
     Route: 065
     Dates: start: 201802, end: 20201117

REACTIONS (2)
  - Product substitution issue [Unknown]
  - Drug ineffective [Unknown]
